FAERS Safety Report 6698038-7 (Version None)
Quarter: 2010Q2

REPORT INFORMATION
  Report Type: 
  Country: None (occurrence: None)
  Receive Date: 20100427
  Receipt Date: 20100416
  Transmission Date: 20101027
  Serious: Yes (Hospitalization, Other)
  Sender: FDA-Public Use
  Company Number: CH-RANBAXY-2010US-30473

PATIENT

DRUGS (18)
  1. KETOROLAC TROMETHAMINE [Suspect]
     Indication: ANAESTHESIA PROCEDURE
     Dosage: 30 MG, UNK
     Route: 065
  2. ACETAMINOPHEN [Suspect]
     Indication: PAIN
     Dosage: 1 G, UNK
     Route: 065
  3. ACETAMINOPHEN [Suspect]
     Indication: ANAESTHESIA
  4. MIDAZOLAM HCL [Suspect]
     Indication: ANAESTHETIC PREMEDICATION
     Dosage: 7.5 MG, UNK
     Route: 065
  5. CLINDAMYCIN [Suspect]
     Indication: PREOPERATIVE CARE
     Dosage: 600 MG, UNK
     Route: 065
  6. LIDOCAINE [Suspect]
     Indication: INDUCTION OF ANAESTHESIA
     Dosage: 50 MG, UNK
     Route: 065
  7. ROCURONIUM BROMIDE [Suspect]
     Indication: INDUCTION AND MAINTENANCE OF ANAESTHESIA
     Dosage: 35 MG, UNK
     Route: 065
  8. ROCURONIUM BROMIDE [Suspect]
     Dosage: 20 MG, UNK
     Route: 065
  9. ALFENTANIL [Suspect]
     Indication: ANAESTHESIA PROCEDURE
     Dosage: 1000 UG, UNK
     Route: 065
  10. OXYTOCIN [Suspect]
     Indication: ANAESTHESIA PROCEDURE
     Dosage: 5 U, UNK
     Route: 065
  11. MISOPROSTOL [Suspect]
     Indication: ANAESTHETIC PREMEDICATION
     Dosage: 200 UG, UNK
     Route: 065
  12. FENTANYL [Suspect]
     Indication: INDUCTION AND MAINTENANCE OF ANAESTHESIA
     Dosage: 200 UG, BOLUS
     Route: 051
  13. FENTANYL [Suspect]
     Dosage: 150 UG, UNK
     Route: 065
  14. MORPHINE [Suspect]
     Indication: PAIN
     Dosage: 2 MG, UNK
     Route: 065
  15. PROPOFOL [Concomitant]
     Indication: INDUCTION OF ANAESTHESIA
     Dosage: 500 MG, UNK
     Route: 065
  16. PROPOFOL [Concomitant]
     Dosage: 150 MG, UNK
  17. SEVOFLURANE [Concomitant]
     Indication: MAINTENANCE OF ANAESTHESIA
     Dosage: UNK, UNK
     Route: 065
  18. ST JOHN'S WORT [Concomitant]
     Indication: DEPRESSION
     Dosage: UNK, UNK
     Route: 065

REACTIONS (4)
  - CARDIO-RESPIRATORY DISTRESS [None]
  - DYSTONIA [None]
  - PARKINSONISM [None]
  - TACHYCARDIA [None]
